FAERS Safety Report 17759151 (Version 1)
Quarter: 2020Q2

REPORT INFORMATION
  Report Type: Spontaneous
  Country: US (occurrence: US)
  Receive Date: 20200508
  Receipt Date: 20200508
  Transmission Date: 20200714
  Serious: Yes (Other)
  Sender: FDA-Public Use
  Company Number: US-LEADINGPHARMA-US-2020LEASPO00069

PATIENT
  Sex: Male

DRUGS (2)
  1. HYDROCHLOROTHIAZIDE TABLETS USP [Suspect]
     Active Substance: HYDROCHLOROTHIAZIDE
     Indication: NEPHROLITHIASIS
     Route: 065
  2. TAMSULOSIN [Suspect]
     Active Substance: TAMSULOSIN
     Indication: NEPHROLITHIASIS
     Route: 065

REACTIONS (3)
  - Arrhythmia [Unknown]
  - Product use in unapproved indication [Unknown]
  - Tachycardia [Unknown]
